FAERS Safety Report 12314693 (Version 2)
Quarter: 2016Q2

REPORT INFORMATION
  Report Type: Spontaneous
  Country: JP (occurrence: JP)
  Receive Date: 20160428
  Receipt Date: 20160429
  Transmission Date: 20160815
  Serious: Yes (Hospitalization, Other)
  Sender: FDA-Public Use
  Company Number: ADR-2009-6134

PATIENT
  Age: 25 Year
  Sex: Male

DRUGS (24)
  1. GABALON [Suspect]
     Active Substance: BACLOFEN
     Route: 037
     Dates: start: 20080221, end: 20080418
  2. GABALON [Suspect]
     Active Substance: BACLOFEN
     Route: 037
     Dates: start: 20080608, end: 20080612
  3. DANTRIUM [Concomitant]
     Active Substance: DANTROLENE SODIUM
  4. REQUIP [Concomitant]
     Active Substance: ROPINIROLE HYDROCHLORIDE
  5. GABALON [Suspect]
     Active Substance: BACLOFEN
     Route: 037
     Dates: start: 20071110, end: 20071111
  6. GABALON [Suspect]
     Active Substance: BACLOFEN
     Route: 037
     Dates: start: 20080612
  7. GABALON [Suspect]
     Active Substance: BACLOFEN
     Route: 037
     Dates: start: 20071105, end: 20071106
  8. GABALON [Suspect]
     Active Substance: BACLOFEN
     Route: 037
     Dates: start: 20071107, end: 20071110
  9. GABALON [Suspect]
     Active Substance: BACLOFEN
     Route: 037
     Dates: start: 20080420, end: 20080514
  10. GABALON [Suspect]
     Active Substance: BACLOFEN
     Route: 037
     Dates: start: 20080212, end: 20080221
  11. GABALON [Suspect]
     Active Substance: BACLOFEN
     Route: 037
     Dates: start: 20080514, end: 20080523
  12. GABALON [Suspect]
     Active Substance: BACLOFEN
     Route: 037
     Dates: start: 20071116, end: 20071121
  13. GABALON [Suspect]
     Active Substance: BACLOFEN
     Route: 037
     Dates: start: 20071114, end: 20071115
  14. GABALON [Suspect]
     Active Substance: BACLOFEN
     Route: 037
     Dates: start: 20071124, end: 20071204
  15. GABALON [Suspect]
     Active Substance: BACLOFEN
     Route: 037
     Dates: start: 20071204, end: 20080212
  16. GABALON [Suspect]
     Active Substance: BACLOFEN
     Route: 037
     Dates: start: 20080418, end: 20080420
  17. GABALON [Suspect]
     Active Substance: BACLOFEN
     Route: 037
     Dates: start: 20071115, end: 20071116
  18. GABALON [Suspect]
     Active Substance: BACLOFEN
     Route: 037
     Dates: start: 20071106, end: 20071107
  19. SOLANAX [Concomitant]
     Active Substance: ALPRAZOLAM
  20. GABALON [Suspect]
     Active Substance: BACLOFEN
     Route: 037
     Dates: start: 20071111, end: 20071114
  21. GABALON [Suspect]
     Active Substance: BACLOFEN
     Route: 037
     Dates: start: 20080603, end: 20080608
  22. GABALON [Suspect]
     Active Substance: BACLOFEN
     Route: 037
     Dates: start: 20080523, end: 20080603
  23. GABALON [Suspect]
     Active Substance: BACLOFEN
     Dosage: 50-200 MCG/DAY
     Route: 037
  24. GABALON [Suspect]
     Active Substance: BACLOFEN
     Route: 037
     Dates: start: 20071121, end: 20071124

REACTIONS (9)
  - Cerebrospinal fluid leakage [Recovered/Resolved]
  - Implant site extravasation [Recovered/Resolved]
  - Intracranial hypotension [Recovered/Resolved]
  - Wound dehiscence [Recovered/Resolved]
  - Post lumbar puncture syndrome [Recovered/Resolved]
  - Muscle spasticity [Recovered/Resolved]
  - Muscle spasms [Recovered/Resolved]
  - Fall [Recovered/Resolved]
  - Clonus [Recovered/Resolved]
